FAERS Safety Report 5043370-6 (Version None)
Quarter: 2006Q3

REPORT INFORMATION
  Report Type: 
  Country: None (occurrence: None)
  Receive Date: 20060705
  Receipt Date: 20060502
  Transmission Date: 20061208
  Serious: Yes (Hospitalization)
  Sender: FDA-Public Use
  Company Number: DE-AMGEN-UK178351

PATIENT

DRUGS (5)
  1. ARANESP [Suspect]
     Indication: ANAEMIA OF MALIGNANT DISEASE
     Route: 058
     Dates: start: 20060331, end: 20060522
  2. NEULASTA [Suspect]
     Indication: CHEMOTHERAPY
     Route: 058
     Dates: start: 20060401, end: 20060515
  3. DOCETAXEL [Concomitant]
     Route: 042
     Dates: start: 20060421
  4. DOXORUBICIN HYDROCHLORIDE [Concomitant]
     Route: 042
     Dates: start: 20060421
  5. CYCLOPHOSPHAMIDE [Concomitant]
     Route: 042
     Dates: start: 20060421

REACTIONS (6)
  - ARTHRALGIA [None]
  - CONTUSION [None]
  - FALL [None]
  - NAUSEA [None]
  - SYNCOPE [None]
  - VOMITING [None]
